FAERS Safety Report 19256279 (Version 2)
Quarter: 2021Q2

REPORT INFORMATION
  Report Type: Report from Study
  Country: FR (occurrence: FR)
  Receive Date: 20210513
  Receipt Date: 20210518
  Transmission Date: 20210717
  Serious: Yes (Other)
  Sender: FDA-Public Use
  Company Number: FR-JNJFOC-20210412063

PATIENT

DRUGS (3)
  1. EPITOMAX [Suspect]
     Active Substance: TOPIRAMATE
     Indication: PRODUCT USED FOR UNKNOWN INDICATION
     Route: 048
  2. EPITOMAX [Suspect]
     Active Substance: TOPIRAMATE
     Route: 048
  3. DEPAKINE CHRONO [Suspect]
     Active Substance: VALPROATE SODIUM
     Indication: PRODUCT USED FOR UNKNOWN INDICATION
     Dosage: MORNING AND EVENING
     Route: 065

REACTIONS (2)
  - Fatigue [Unknown]
  - Neutropenia [Unknown]
